FAERS Safety Report 23249633 (Version 3)
Quarter: 2025Q4

REPORT INFORMATION
  Report Type: Report from Study
  Country: CN (occurrence: CN)
  Receive Date: 20231201
  Receipt Date: 20251210
  Transmission Date: 20260117
  Serious: Yes (Other)
  Sender: NOVARTIS
  Company Number: CN-002147023-NVSC2023CN253112

PATIENT
  Sex: Male

DRUGS (5)
  1. LEQVIO [Suspect]
     Active Substance: INCLISIRAN SODIUM
     Indication: Hyperlipidaemia
     Dosage: 1.5 ML, OTHER (AFTER THE FIRST ADMINISTRATION, THE DRUG WAS GIVEN AGAIN AT 3 MONTHS, AND THEN ONCE E
     Route: 058
     Dates: start: 20231110
  2. LEQVIO [Suspect]
     Active Substance: INCLISIRAN SODIUM
     Dosage: 1.5 ML
     Route: 058
     Dates: start: 20240207, end: 20240207
  3. LEQVIO [Suspect]
     Active Substance: INCLISIRAN SODIUM
     Dosage: 1.5 ML
     Route: 058
     Dates: start: 20240729, end: 20240729
  4. LEQVIO [Suspect]
     Active Substance: INCLISIRAN SODIUM
     Dosage: 1.5 ML
     Route: 058
  5. LEQVIO [Suspect]
     Active Substance: INCLISIRAN SODIUM
     Dosage: 1.5 ML
     Route: 058
     Dates: start: 20250803, end: 20250803

REACTIONS (14)
  - Electrocardiogram Q wave abnormal [Unknown]
  - Electrocardiogram ST-T change [Unknown]
  - Chest pain [Unknown]
  - Chest discomfort [Unknown]
  - Axillary pain [Unknown]
  - Back pain [Unknown]
  - Carbon dioxide increased [Unknown]
  - Blood glucose increased [Unknown]
  - Blood lactic acid increased [Unknown]
  - Oxygen saturation increased [Unknown]
  - Discomfort [Unknown]
  - Alanine aminotransferase increased [Unknown]
  - Blood uric acid increased [Unknown]
  - High density lipoprotein decreased [Unknown]

NARRATIVE: CASE EVENT DATE: 20231123
